FAERS Safety Report 9267975 (Version 2)
Quarter: 2013Q2

REPORT INFORMATION
  Report Type: Spontaneous
  Country: JP (occurrence: JP)
  Receive Date: 20130502
  Receipt Date: 20130530
  Transmission Date: 20140414
  Serious: Yes (Hospitalization)
  Sender: FDA-Public Use
  Company Number: JP-B.I. PHARMACEUTICALS,INC./RIDGEFIELD-2013-BI-11806NB

PATIENT
  Age: 60 Year
  Sex: Male

DRUGS (3)
  1. PRADAXA [Suspect]
     Dates: end: 20130318
  2. PRADAXA [Suspect]
     Dates: start: 20130328
  3. PRADAXA [Suspect]
     Dates: end: 20130423

REACTIONS (3)
  - Oesophageal carcinoma [Unknown]
  - Wrong technique in drug usage process [Unknown]
  - Off label use [Unknown]
